FAERS Safety Report 8369619-X (Version None)
Quarter: 2012Q2

REPORT INFORMATION
  Report Type: 
  Country: None (occurrence: None)
  Receive Date: 20120517
  Receipt Date: 20120517
  Transmission Date: 20120825
  Serious: Yes (Life-Threatening, Other)
  Sender: FDA-Public Use
  Company Number: None

PATIENT
  Age: 42 Year
  Sex: Male
  Weight: 83.9154 kg

DRUGS (4)
  1. TAC 20% TOPICAL ANESTHETIC LIDO20% TETRACAINE4% PROFESSIONAL ARTS PHAR [Suspect]
     Indication: HYPOAESTHESIA
     Dosage: TOPICAL
     Route: 061
     Dates: start: 20120510, end: 20120510
  2. SEPTOCAINE [Suspect]
     Indication: HYPOAESTHESIA
     Dosage: SEPTOCAINE PO
     Route: 048
     Dates: start: 20120510, end: 20120510
  3. TETRACAINE POLYGYL STERILE OPHTHALMIC SOLUTION [Suspect]
  4. LIDO [Suspect]

REACTIONS (2)
  - DYSPNOEA [None]
  - PHARYNGEAL HYPOAESTHESIA [None]
